FAERS Safety Report 15082037 (Version 1)
Quarter: 2018Q2

REPORT INFORMATION
  Report Type: Spontaneous
  Country: DE (occurrence: DE)
  Receive Date: 20180628
  Receipt Date: 20180628
  Transmission Date: 20180711
  Serious: Yes (Other)
  Sender: FDA-Public Use
  Company Number: DE-GLAXOSMITHKLINE-DE2018GSK108010

PATIENT
  Age: 50 Year
  Sex: Female

DRUGS (1)
  1. ATMADISC [Suspect]
     Active Substance: FLUTICASONE PROPIONATE\SALMETEROL XINAFOATE
     Indication: PRODUCT USED FOR UNKNOWN INDICATION
     Dosage: 1 PUFF(S), BID

REACTIONS (2)
  - Product quality issue [Unknown]
  - Respiratory distress [Recovered/Resolved]

NARRATIVE: CASE EVENT DATE: 20180610
